FAERS Safety Report 4351111-0 (Version None)
Quarter: 2004Q2

REPORT INFORMATION
  Report Type: 
  Country: None (occurrence: None)
  Receive Date: 20040430
  Receipt Date: 20040421
  Transmission Date: 20050107
  Serious: Yes (Hospitalization, Other)
  Sender: FDA-Public Use
  Company Number: JP-MERCK-0404USA02254

PATIENT
  Age: 67 Year
  Sex: Female

DRUGS (8)
  1. ISALON [Concomitant]
     Route: 065
     Dates: start: 20030801, end: 20040215
  2. NORVASC [Concomitant]
     Route: 048
     Dates: start: 20030925, end: 20040215
  3. DEPAS [Concomitant]
     Route: 048
     Dates: start: 20030801, end: 20040215
  4. PEPCID RPD [Suspect]
     Indication: GASTRIC ULCER
     Route: 048
     Dates: start: 20030401, end: 20040215
  5. LOXONIN [Concomitant]
     Route: 048
     Dates: start: 20030801, end: 20040215
  6. CYANOCOBALAMIN [Concomitant]
     Route: 065
     Dates: start: 20030801, end: 20040215
  7. NEUROTROPIN [Concomitant]
     Route: 065
     Dates: start: 20030801, end: 20040215
  8. PREDNISOLONE [Concomitant]
     Route: 065
     Dates: start: 20030801

REACTIONS (6)
  - EPISTAXIS [None]
  - HAEMOLYTIC ANAEMIA [None]
  - OEDEMA PERIPHERAL [None]
  - PROTEINURIA [None]
  - SPINAL CORD INJURY CERVICAL [None]
  - THROMBOCYTOPENIA [None]
